FAERS Safety Report 9438257 (Version 1)
Quarter: 2013Q3

REPORT INFORMATION
  Report Type: Spontaneous
  Country: US (occurrence: US)
  Receive Date: 20130802
  Receipt Date: 20130802
  Transmission Date: 20140515
  Serious: No
  Sender: FDA-Public Use
  Company Number: US-BRISTOL-MYERS SQUIBB COMPANY-17002163

PATIENT
  Age: 61 Year
  Sex: Female

DRUGS (8)
  1. WARFARIN SODIUM [Suspect]
     Dosage: CHANGED TO 4MG AND THEN TO 5MG;CURRENTLY ON 6MG
     Dates: start: 201205
  2. HYDROCODONE [Concomitant]
  3. OMEPRAZOLE [Concomitant]
  4. AMIODARONE [Concomitant]
  5. LISINOPRIL [Concomitant]
  6. CARVEDILOL [Concomitant]
  7. TRICOR [Concomitant]
  8. LEVOTHYROXINE [Concomitant]

REACTIONS (1)
  - Therapy change [Unknown]
